FAERS Safety Report 9109238 (Version 2)
Quarter: 2013Q2

REPORT INFORMATION
  Report Type: Spontaneous
  Country: DE (occurrence: DE)
  Receive Date: 20130222
  Receipt Date: 20130606
  Transmission Date: 20140414
  Serious: Yes (Hospitalization, Other)
  Sender: FDA-Public Use
  Company Number: DE-ELI_LILLY_AND_COMPANY-DE201302003622

PATIENT
  Sex: Female

DRUGS (2)
  1. FORSTEO [Suspect]
     Indication: OSTEOPOROSIS
     Dosage: UNK UNK, QD
     Route: 058
     Dates: start: 20110812
  2. CALCIUM + VITAMIN D [Concomitant]

REACTIONS (3)
  - Haemoglobin decreased [Recovering/Resolving]
  - Gastric ulcer [Recovered/Resolved]
  - Arthralgia [Not Recovered/Not Resolved]
